FAERS Safety Report 8273335-2 (Version None)
Quarter: 2012Q2

REPORT INFORMATION
  Report Type: 
  Country: None (occurrence: None)
  Receive Date: 20120411
  Receipt Date: 20120405
  Transmission Date: 20120825
  Serious: Yes (Death, Hospitalization)
  Sender: FDA-Public Use
  Company Number: PHHY2012TW008105

PATIENT
  Sex: Female
  Weight: 52 kg

DRUGS (12)
  1. CEFTIBUTEN [Concomitant]
     Dosage: 2 DF, Q12H
  2. POTASSIUM CHLORIDE [Concomitant]
     Dosage: 1 DF, TID
  3. LEVOCETIRIZINE DIHYDROCHLORIDE [Concomitant]
     Dosage: 5 MG, QD
     Dates: start: 20120321
  4. THEOPHYLLINE [Concomitant]
     Dosage: 1 DF, BID
  5. FUROSEMIDE [Concomitant]
  6. PIPERACILLIN AND TAZOBACTAM [Concomitant]
     Dosage: 2 DF, Q6H
     Dates: start: 20120309, end: 20120312
  7. LEVOFLOXACIN [Concomitant]
     Dosage: 500 MG, QD
     Dates: start: 20120326
  8. COUGH MIXTURE A [Concomitant]
     Dosage: 120 ML, QID
  9. ACETYLCYSTEIN AL [Concomitant]
     Dosage: 1 DF, BID
  10. OXYGEN [Concomitant]
  11. TASIGNA [Suspect]
     Indication: CHRONIC MYELOID LEUKAEMIA
     Dosage: 200 MG, BID
     Route: 048
     Dates: start: 20100612, end: 20120405
  12. PREDNISOLONE [Concomitant]
     Dosage: 2 DF, TID

REACTIONS (16)
  - SPUTUM DISCOLOURED [None]
  - PYREXIA [None]
  - DYSPNOEA [None]
  - BLOOD PRESSURE INCREASED [None]
  - ASTHENIA [None]
  - PNEUMONIA [None]
  - LUNG INFILTRATION [None]
  - DECREASED APPETITE [None]
  - RESPIRATORY ACIDOSIS [None]
  - CARDIOMEGALY [None]
  - PRODUCTIVE COUGH [None]
  - RESPIRATORY FAILURE [None]
  - HYPERCAPNIA [None]
  - COUGH [None]
  - C-REACTIVE PROTEIN INCREASED [None]
  - CHRONIC OBSTRUCTIVE PULMONARY DISEASE [None]
